FAERS Safety Report 6076156-4 (Version None)
Quarter: 2009Q1

REPORT INFORMATION
  Report Type: 
  Country: None (occurrence: None)
  Receive Date: 20090212
  Receipt Date: 20090204
  Transmission Date: 20090719
  Serious: No
  Sender: FDA-Public Use
  Company Number: US-B.I. PHARMACEUTICALS,INC./RIDGEFIELD-2009-BP-01369BP

PATIENT
  Sex: Female

DRUGS (12)
  1. SPIRIVA [Suspect]
     Indication: EMPHYSEMA
     Dosage: 18MCG
     Route: 055
     Dates: start: 20090128, end: 20090202
  2. LOVASTATIN [Concomitant]
     Indication: BLOOD CHOLESTEROL INCREASED
  3. KLONOPIN [Concomitant]
     Indication: NEURALGIA
  4. HYDRALAZINE HCL [Concomitant]
     Indication: HYPERTENSION
  5. PREGABALIN [Concomitant]
     Indication: HERPES ZOSTER
  6. HYDROCHLOROTHIAZIDE [Concomitant]
     Indication: HYPERTENSION
  7. LISINOPRIL [Concomitant]
     Indication: HYPERTENSION
  8. TOPROL-XL [Concomitant]
     Indication: HYPERTENSION
  9. DILTIAZEM [Concomitant]
     Indication: CARDIAC DISORDER
  10. LEVOTHYROXINE SODIUM [Concomitant]
     Indication: HYPOTHYROIDISM
  11. ASPIRIN [Concomitant]
     Indication: CARDIAC DISORDER
  12. NITROGLYCERIN [Concomitant]
     Indication: CARDIAC DISORDER

REACTIONS (9)
  - DRY MOUTH [None]
  - DRY THROAT [None]
  - DYSPNOEA [None]
  - LACRIMATION INCREASED [None]
  - LIP SWELLING [None]
  - NERVOUSNESS [None]
  - RHINORRHOEA [None]
  - SNEEZING [None]
  - SWOLLEN TONGUE [None]
